FAERS Safety Report 8205986-5 (Version None)
Quarter: 2012Q1

REPORT INFORMATION
  Report Type: 
  Country: None (occurrence: None)
  Receive Date: 20120313
  Receipt Date: 20120229
  Transmission Date: 20120608
  Serious: Yes (Death, Life-Threatening, Hospitalization, Other)
  Sender: FDA-Public Use
  Company Number: US-MYLANLABS-2012S1005070

PATIENT
  Sex: Female

DRUGS (16)
  1. REGLAN [Concomitant]
  2. HYDROCHLOROTHIAZIDE [Concomitant]
  3. PHENERGAN [Concomitant]
  4. DIGOXIN [Suspect]
  5. PAXIL [Concomitant]
  6. DARVOCET [Concomitant]
  7. VICODIN [Concomitant]
  8. COUMADIN [Concomitant]
  9. LISINOPRIL [Concomitant]
  10. CLOBURTAMINE [Concomitant]
  11. KLOR-CON [Concomitant]
  12. LASIX [Concomitant]
  13. ALDACTONE [Concomitant]
  14. ASPIRIN [Concomitant]
  15. COREG [Concomitant]
  16. PACERONE [Concomitant]

REACTIONS (80)
  - CONGESTIVE CARDIOMYOPATHY [None]
  - CARDIAC FAILURE CONGESTIVE [None]
  - BREATH SOUNDS ABNORMAL [None]
  - BUNDLE BRANCH BLOCK LEFT [None]
  - DISORIENTATION [None]
  - HAEMATOMA EVACUATION [None]
  - HIP FRACTURE [None]
  - MUSCLE ATROPHY [None]
  - RALES [None]
  - TOBACCO USER [None]
  - CACHEXIA [None]
  - VENTRICULAR TACHYCARDIA [None]
  - FEMORAL ARTERY OCCLUSION [None]
  - FLUID OVERLOAD [None]
  - IMPLANTABLE DEFIBRILLATOR INSERTION [None]
  - JUGULAR VEIN DISTENSION [None]
  - MENTAL STATUS CHANGES [None]
  - ASTHENIA [None]
  - LETHARGY [None]
  - PNEUMONIA [None]
  - RESPIRATORY ARREST [None]
  - WEIGHT DECREASED [None]
  - DILATATION VENTRICULAR [None]
  - DYSARTHRIA [None]
  - HYPOTENSION [None]
  - ILL-DEFINED DISORDER [None]
  - ORTHOPNOEA [None]
  - FATIGUE [None]
  - CARDIAC VALVE DISEASE [None]
  - RENAL FAILURE ACUTE [None]
  - ECHOCARDIOGRAM ABNORMAL [None]
  - HEART RATE INCREASED [None]
  - HYPERBILIRUBINAEMIA [None]
  - LUNG INFILTRATION [None]
  - MASTOIDITIS [None]
  - MEAN CELL VOLUME INCREASED [None]
  - MENINGIOMA [None]
  - MUSCLE SPASMS [None]
  - PULMONARY CONGESTION [None]
  - SINUSITIS [None]
  - SKIN FRAGILITY [None]
  - DEATH [None]
  - CARDIAC ARREST [None]
  - DEEP VEIN THROMBOSIS [None]
  - ARTERIAL DISORDER [None]
  - CARDIAC MURMUR [None]
  - DIURETIC THERAPY [None]
  - DYSPNOEA EXERTIONAL [None]
  - LEFT ATRIAL DILATATION [None]
  - URINARY TRACT INFECTION [None]
  - VENTRICULAR HYPOKINESIA [None]
  - LACUNAR INFARCTION [None]
  - CARDIOMEGALY [None]
  - EJECTION FRACTION DECREASED [None]
  - HYPOPROTEINAEMIA [None]
  - MALNUTRITION [None]
  - MUSCULOSKELETAL PAIN [None]
  - BACK PAIN [None]
  - DEPRESSION [None]
  - DIZZINESS [None]
  - DYSPEPSIA [None]
  - ELECTROCARDIOGRAM ABNORMAL [None]
  - ESCHERICHIA INFECTION [None]
  - GALLOP RHYTHM PRESENT [None]
  - MUCOSAL DRYNESS [None]
  - OSTEOPENIA [None]
  - ARTHRALGIA [None]
  - ATRIOVENTRICULAR BLOCK FIRST DEGREE [None]
  - CORONARY ARTERY DISEASE [None]
  - PLEURAL EFFUSION [None]
  - RESUSCITATION [None]
  - LABORATORY TEST ABNORMAL [None]
  - DEHYDRATION [None]
  - DYSPHAGIA [None]
  - DYSPNOEA PAROXYSMAL NOCTURNAL [None]
  - FALL [None]
  - HAEMATOMA [None]
  - RENAL ATROPHY [None]
  - WHEELCHAIR USER [None]
  - PAIN IN EXTREMITY [None]
